FAERS Safety Report 7656023-2 (Version None)
Quarter: 2011Q3

REPORT INFORMATION
  Report Type: 
  Country: None (occurrence: None)
  Receive Date: 20110804
  Receipt Date: 20110729
  Transmission Date: 20111222
  Serious: Yes (Other)
  Sender: FDA-Public Use
  Company Number: DE-ROCHE-786310

PATIENT
  Sex: Female
  Weight: 80 kg

DRUGS (6)
  1. ACTEMRA [Suspect]
     Indication: RHEUMATOID ARTHRITIS
     Dosage: THREE INFUSIONS GIVEN
     Route: 042
     Dates: start: 20110405, end: 20110606
  2. LEVOTHYROXINE SODIUM [Concomitant]
     Route: 048
  3. CALCIUM ACETATE [Concomitant]
     Indication: OSTEOPENIA
     Route: 048
  4. CORTICOSTEROIDS [Concomitant]
     Dosage: DOSE: 5-10 MG FREQUNECY: DAILY
     Route: 048
  5. DEKRISTOL [Concomitant]
     Indication: OSTEOPENIA
     Route: 048
  6. PREDNISONE [Concomitant]
     Indication: RHEUMATOID ARTHRITIS

REACTIONS (2)
  - SKIN ULCER [None]
  - THROMBOPHLEBITIS [None]
